FAERS Safety Report 9364145 (Version 1)
Quarter: 2013Q2

REPORT INFORMATION
  Report Type: Spontaneous
  Country: US (occurrence: US)
  Receive Date: 20130624
  Receipt Date: 20130624
  Transmission Date: 20140414
  Serious: Yes (Hospitalization, Other)
  Sender: FDA-Public Use
  Company Number: US-UCBSA-078023

PATIENT
  Age: 65 Year
  Sex: Female

DRUGS (7)
  1. CIMZIA [Suspect]
     Indication: RHEUMATOID ARTHRITIS
     Dosage: 400 MG WEEKS 0,2,4
     Dates: start: 20121218, end: 20130129
  2. PREDNISONE [Suspect]
     Dosage: DOSE INCREASED
     Dates: start: 201303
  3. PREDNISONE [Suspect]
     Dosage: UNKNOWN
     Dates: end: 201303
  4. METHOTREXATE [Suspect]
  5. FORTEO [Suspect]
     Indication: OSTEOPOROSIS
  6. METFORMIN [Concomitant]
     Indication: DIABETES MELLITUS
     Dates: start: 201303
  7. INSULIN [Concomitant]
     Indication: DIABETES MELLITUS
     Dates: start: 201303

REACTIONS (12)
  - Fall [Unknown]
  - Meniscus injury [Unknown]
  - Exostosis [Unknown]
  - Bone disorder [Unknown]
  - Hypotension [Unknown]
  - Pneumonia [Unknown]
  - Diabetes mellitus [Unknown]
  - Thrombosis [Unknown]
  - Interstitial lung disease [Unknown]
  - Malaise [Not Recovered/Not Resolved]
  - Somnolence [Unknown]
  - Asthenia [Unknown]
